FAERS Safety Report 19595508 (Version 1)
Quarter: 2021Q3

REPORT INFORMATION
  Report Type: Spontaneous
  Country: DE (occurrence: DE)
  Receive Date: 20210723
  Receipt Date: 20210723
  Transmission Date: 20211014
  Serious: Yes (Hospitalization)
  Sender: FDA-Public Use
  Company Number: DE-JNJFOC-20210667455

PATIENT
  Age: 25 Year
  Sex: Male
  Weight: 75 kg

DRUGS (26)
  1. RISPERIDONE. [Suspect]
     Active Substance: RISPERIDONE
     Indication: SCHIZOPHRENIA
     Route: 065
     Dates: start: 20200506, end: 20200506
  2. PIPAMPERONE [Suspect]
     Active Substance: PIPAMPERONE
     Indication: SCHIZOPHRENIA
     Route: 065
     Dates: start: 20200505, end: 20200505
  3. LORAZEPAM. [Concomitant]
     Active Substance: LORAZEPAM
     Route: 065
     Dates: start: 20200514, end: 20200514
  4. PIPAMPERONE [Suspect]
     Active Substance: PIPAMPERONE
     Route: 065
     Dates: start: 20200509, end: 20200509
  5. LORAZEPAM. [Concomitant]
     Active Substance: LORAZEPAM
     Route: 065
     Dates: start: 20200507, end: 20200507
  6. PIPAMPERONE [Suspect]
     Active Substance: PIPAMPERONE
     Route: 065
     Dates: start: 20200521, end: 20200521
  7. LORAZEPAM. [Concomitant]
     Active Substance: LORAZEPAM
     Route: 065
     Dates: start: 20200510, end: 20200513
  8. RISPERIDONE. [Suspect]
     Active Substance: RISPERIDONE
     Route: 065
     Dates: start: 20200519, end: 20200519
  9. PIPAMPERONE [Suspect]
     Active Substance: PIPAMPERONE
     Route: 065
     Dates: start: 20200508, end: 20200508
  10. PIPAMPERONE [Suspect]
     Active Substance: PIPAMPERONE
     Route: 065
     Dates: start: 20200512, end: 20200515
  11. PIPAMPERONE [Suspect]
     Active Substance: PIPAMPERONE
     Route: 065
     Dates: start: 20200520, end: 20200520
  12. PIPAMPERONE [Suspect]
     Active Substance: PIPAMPERONE
     Route: 065
     Dates: start: 20200507, end: 20200507
  13. LORAZEPAM. [Concomitant]
     Active Substance: LORAZEPAM
     Route: 065
     Dates: start: 20200504, end: 20200504
  14. RISPERIDONE. [Suspect]
     Active Substance: RISPERIDONE
     Route: 065
     Dates: start: 20200521, end: 20200522
  15. PIPAMPERONE [Suspect]
     Active Substance: PIPAMPERONE
     Route: 065
     Dates: start: 20200506, end: 20200506
  16. PIPAMPERONE [Suspect]
     Active Substance: PIPAMPERONE
     Route: 065
     Dates: start: 20200518, end: 20200519
  17. LORAZEPAM. [Concomitant]
     Active Substance: LORAZEPAM
     Route: 065
     Dates: start: 20200505, end: 20200506
  18. LORAZEPAM. [Concomitant]
     Active Substance: LORAZEPAM
     Route: 065
     Dates: start: 20200518, end: 20200520
  19. RISPERIDONE. [Suspect]
     Active Substance: RISPERIDONE
     Route: 065
     Dates: start: 20200520, end: 20200520
  20. PIPAMPERONE [Suspect]
     Active Substance: PIPAMPERONE
     Route: 065
     Dates: start: 20200516, end: 20200516
  21. RISPERIDONE. [Suspect]
     Active Substance: RISPERIDONE
     Route: 065
     Dates: start: 20200507, end: 20200507
  22. RISPERIDONE. [Suspect]
     Active Substance: RISPERIDONE
     Route: 065
     Dates: start: 20200508, end: 20200518
  23. PIPAMPERONE [Suspect]
     Active Substance: PIPAMPERONE
     Route: 065
     Dates: start: 20200510, end: 20200511
  24. PIPAMPERONE [Suspect]
     Active Substance: PIPAMPERONE
     Route: 065
     Dates: start: 20200517, end: 20200517
  25. LORAZEPAM. [Concomitant]
     Active Substance: LORAZEPAM
     Route: 065
     Dates: start: 20200508, end: 20200508
  26. LORAZEPAM. [Concomitant]
     Active Substance: LORAZEPAM
     Route: 065
     Dates: start: 20200509, end: 20200509

REACTIONS (9)
  - Loss of personal independence in daily activities [Recovered/Resolved]
  - Parkinsonian gait [Recovered/Resolved]
  - Dysstasia [Recovered/Resolved]
  - Decreased gait velocity [Recovered/Resolved]
  - Bradyphrenia [Recovered/Resolved]
  - Psychomotor retardation [Recovered/Resolved]
  - Gait disturbance [Recovered/Resolved]
  - Salivary hypersecretion [Recovered/Resolved]
  - Parkinsonism [Recovered/Resolved]

NARRATIVE: CASE EVENT DATE: 20200518
